FAERS Safety Report 19349317 (Version 2)
Quarter: 2021Q3

REPORT INFORMATION
  Report Type: Report from Study
  Country: CN (occurrence: CN)
  Receive Date: 20210531
  Receipt Date: 20210803
  Transmission Date: 20211014
  Serious: Yes (Other)
  Sender: FDA-Public Use
  Company Number: CN-SUN PHARMACEUTICAL INDUSTRIES LTD-2021R1-298614

PATIENT
  Age: 61 Year
  Sex: Female
  Weight: 50 kg

DRUGS (4)
  1. VORICONAZOLE. [Interacting]
     Active Substance: VORICONAZOLE
     Indication: PRODUCT USED FOR UNKNOWN INDICATION
     Dosage: 300 MILLIGRAM, 1DOSE/12HOUR
     Route: 042
     Dates: start: 20170914
  2. VORICONAZOLE. [Interacting]
     Active Substance: VORICONAZOLE
     Dosage: 200 MILLIGRAM, 1DOSE/12HOUR
     Route: 048
     Dates: start: 20170914, end: 20171029
  3. VORICONAZOLE. [Interacting]
     Active Substance: VORICONAZOLE
     Dosage: 200 MILLIGRAM, 1DOSE/12HOUR
     Route: 042
     Dates: start: 20170914
  4. OMEPRAZOLE. [Suspect]
     Active Substance: OMEPRAZOLE
     Indication: PRODUCT USED FOR UNKNOWN INDICATION
     Dosage: 40 MILLIGRAM, QD
     Route: 042
     Dates: start: 20170912, end: 20170924

REACTIONS (3)
  - Hallucination [Unknown]
  - Dizziness [Unknown]
  - Drug interaction [Unknown]
